FAERS Safety Report 6114023-8 (Version None)
Quarter: 2009Q1

REPORT INFORMATION
  Report Type: 
  Country: None (occurrence: None)
  Receive Date: 20090312
  Receipt Date: 20090302
  Transmission Date: 20090719
  Serious: No
  Sender: FDA-Public Use
  Company Number: US-ABBOTT-09P-163-0560251-00

PATIENT
  Sex: Female
  Weight: 54.026 kg

DRUGS (4)
  1. LUPRON DEPOT [Suspect]
     Indication: ENDOMETRIOSIS
     Route: 030
     Dates: start: 20090101
  2. PROTONIX [Concomitant]
     Indication: DRUG USE FOR UNKNOWN INDICATION
  3. LIBRAX [Concomitant]
     Indication: DRUG USE FOR UNKNOWN INDICATION
  4. PROMETRIUM [Concomitant]
     Indication: DRUG USE FOR UNKNOWN INDICATION

REACTIONS (5)
  - ABDOMINAL DISTENSION [None]
  - BURNING SENSATION [None]
  - PAIN [None]
  - SENSORY DISTURBANCE [None]
  - WEIGHT INCREASED [None]
